FAERS Safety Report 6531992-2 (Version None)
Quarter: 2010Q1

REPORT INFORMATION
  Report Type: 
  Country: None (occurrence: None)
  Receive Date: 20100107
  Receipt Date: 20100107
  Transmission Date: 20100710
  Serious: Yes (Hospitalization)
  Sender: FDA-Public Use
  Company Number: None

PATIENT
  Age: 74 Year
  Sex: Male

DRUGS (1)
  1. FENOFIBRATE [Suspect]
     Indication: HYPERLIPIDAEMIA
     Dosage: 1 TAB EVERY DAY PO
     Route: 048
     Dates: start: 20090628, end: 20090721

REACTIONS (2)
  - HYPOCOAGULABLE STATE [None]
  - RENAL FAILURE [None]
